FAERS Safety Report 18534446 (Version 2)
Quarter: 2021Q1

REPORT INFORMATION
  Report Type: Report from Study
  Country: US (occurrence: US)
  Receive Date: 20201123
  Receipt Date: 20210208
  Transmission Date: 20210419
  Serious: Yes (Other)
  Sender: FDA-Public Use
  Company Number: US-JNJFOC-20201128127

PATIENT
  Age: 60 Year
  Sex: Female
  Weight: 88.53 kg

DRUGS (4)
  1. SPRAVATO [Suspect]
     Active Substance: ESKETAMINE
     Dosage: 84MG, 10 TOTAL DOSES
     Dates: start: 20200727, end: 20201001
  2. SPRAVATO [Suspect]
     Active Substance: ESKETAMINE
     Dosage: 84MG
     Dates: start: 20201105, end: 20201105
  3. SPRAVATO [Suspect]
     Active Substance: ESKETAMINE
     Indication: DEPRESSION
     Dates: start: 20200730, end: 20200730
  4. VRAYLAR [Concomitant]
     Active Substance: CARIPRAZINE
     Indication: DEPRESSION
     Dates: start: 202010, end: 202012

REACTIONS (4)
  - Micturition urgency [Not Recovered/Not Resolved]
  - Pollakiuria [Recovered/Resolved]
  - Dissociation [Recovered/Resolved]
  - Bladder spasm [Not Recovered/Not Resolved]

NARRATIVE: CASE EVENT DATE: 20201105
